FAERS Safety Report 9714019 (Version 1)
Quarter: 2013Q4

REPORT INFORMATION
  Report Type: Spontaneous
  Country: US (occurrence: US)
  Receive Date: 20131126
  Receipt Date: 20131126
  Transmission Date: 20140711
  Serious: No
  Sender: FDA-Public Use
  Company Number: US-GILEAD-2008-0018573

PATIENT
  Sex: Male
  Weight: 78.02 kg

DRUGS (14)
  1. LETAIRIS [Suspect]
     Indication: COR PULMONALE CHRONIC
     Route: 048
     Dates: start: 20081010
  2. ALPRAZOLAM [Concomitant]
  3. SINGULAIR [Concomitant]
  4. PRILOSEC [Concomitant]
  5. LASIX [Concomitant]
  6. DIOVAN [Concomitant]
  7. RHINOCORT [Concomitant]
  8. CRESTOR [Concomitant]
  9. FLOMAX [Concomitant]
  10. SPIRIVA HANDIHALER [Concomitant]
  11. DICYCLOMINE [Concomitant]
  12. ASPIRIN [Concomitant]
  13. HYDROCODONE [Concomitant]
  14. TOPROL XL [Concomitant]

REACTIONS (1)
  - Oedema [None]
